FAERS Safety Report 20120690 (Version 1)
Quarter: 2021Q4

REPORT INFORMATION
  Report Type: Spontaneous
  Country: JP (occurrence: JP)
  Receive Date: 20211126
  Receipt Date: 20211126
  Transmission Date: 20220303
  Serious: Yes (Death, Life-Threatening, Hospitalization, Other)
  Sender: FDA-Public Use
  Company Number: JP-SA-2021SA394272

PATIENT
  Sex: Male

DRUGS (4)
  1. OXALIPLATIN [Suspect]
     Active Substance: OXALIPLATIN
     Indication: Colorectal cancer
     Dosage: 85 MG/M2, QCY (REPEATED EVERY 2 WEEKS) (40% OF OXALIPLATIN)
  2. LEUCOVORIN CALCIUM [Suspect]
     Active Substance: LEUCOVORIN CALCIUM
     Indication: Colorectal cancer
     Dosage: 400 MG/M2, QCY (REPEATED EVERY 2 WEEKS)
  3. FLUOROURACIL [Suspect]
     Active Substance: FLUOROURACIL
     Indication: Colorectal cancer
     Dosage: 400 MG/M2, QCY (REPEATED EVERY 2 WEEKS) (80% OF 5-FU)
     Route: 040
  4. FLUOROURACIL [Suspect]
     Active Substance: FLUOROURACIL
     Dosage: CONTINUOUS 2400 MG/M2, QCY (REPEATED EVERY 2 WEEKS) ((80% OF 5-FU)
     Route: 040

REACTIONS (5)
  - Hyperammonaemia [Fatal]
  - Decreased appetite [Fatal]
  - Nausea [Fatal]
  - Vomiting [Fatal]
  - Depressed level of consciousness [Fatal]
